FAERS Safety Report 5029090-2 (Version None)
Quarter: 2006Q2

REPORT INFORMATION
  Report Type: 
  Country: None (occurrence: None)
  Receive Date: 20060613
  Receipt Date: 20060612
  Transmission Date: 20061013
  Serious: Yes (Life-Threatening, Hospitalization)
  Sender: FDA-Public Use
  Company Number: FRWYE033324FEB03

PATIENT
  Age: 39 Year
  Sex: Female

DRUGS (6)
  1. SIROLIMUS                            (SIROLIMUS) [Suspect]
     Indication: PROPHYLAXIS AGAINST TRANSPLANT REJECTION
     Dosage: 5 MG 1X PER 1 DAY ORAL; SEE IMAGE
     Route: 048
     Dates: start: 20021102, end: 20030101
  2. SIROLIMUS                            (SIROLIMUS) [Suspect]
     Indication: PROPHYLAXIS AGAINST TRANSPLANT REJECTION
     Dosage: 5 MG 1X PER 1 DAY ORAL; SEE IMAGE
     Route: 048
     Dates: start: 20030101, end: 20030304
  3. CELLCEPT [Suspect]
     Indication: PROPHYLAXIS AGAINST TRANSPLANT REJECTION
     Dosage: 1 G 1X PER 1 DAY ORAL
     Route: 048
     Dates: start: 20021101
  4. SOLUPRED (PREDNISOLONE SODIUM SULFOBENZOATE, , 0) [Suspect]
     Indication: PROPHYLAXIS AGAINST TRANSPLANT REJECTION
     Dosage: 7.5 MG 1X PER 1 DAY ORAL
     Route: 048
     Dates: start: 20021101
  5. AMLODIPINE BESYLATE [Concomitant]
  6. HUMALOG [Concomitant]

REACTIONS (8)
  - ARTERIOVENOUS FISTULA THROMBOSIS [None]
  - BODY TEMPERATURE INCREASED [None]
  - CANDIDA SEPSIS [None]
  - CARDIAC VALVE VEGETATION [None]
  - DISEASE RECURRENCE [None]
  - ENDOCARDITIS [None]
  - MYCOTIC ANEURYSM [None]
  - RENAL ANEURYSM [None]
